FAERS Safety Report 9005465 (Version 1)
Quarter: 2013Q1

REPORT INFORMATION
  Report Type: Spontaneous
  Country: US (occurrence: US)
  Receive Date: 20130109
  Receipt Date: 20130109
  Transmission Date: 20140127
  Serious: Yes (Death)
  Sender: FDA-Public Use
  Company Number: US-PFIZER INC-2013007428

PATIENT
  Age: 17 Year
  Sex: Female

DRUGS (3)
  1. SILDENAFIL CITRATE [Suspect]
     Dosage: UNK
  2. ACETYLSALICYLIC ACID [Suspect]
     Dosage: UNK
  3. COLCHICINE [Suspect]
     Dosage: UNK

REACTIONS (1)
  - Completed suicide [Fatal]
